FAERS Safety Report 19788181 (Version 2)
Quarter: 2023Q1

REPORT INFORMATION
  Report Type: Report from Study
  Country: US (occurrence: US)
  Receive Date: 20210903
  Receipt Date: 20230325
  Transmission Date: 20230417
  Serious: Yes (Life-Threatening, Hospitalization, Other)
  Sender: FDA-Public Use
  Company Number: US-NOVARTISPH-NVSC2021US199098

PATIENT
  Age: 11 Year
  Sex: Male
  Weight: 79 kg

DRUGS (7)
  1. ARZERRA [Suspect]
     Active Substance: OFATUMUMAB
     Indication: Nephrotic syndrome
     Dosage: UNK
     Route: 065
     Dates: start: 202007
  2. ARZERRA [Suspect]
     Active Substance: OFATUMUMAB
     Dosage: 700 MG, XT (IN NS 1L)
     Route: 042
     Dates: start: 20210121, end: 20210121
  3. ARZERRA [Suspect]
     Active Substance: OFATUMUMAB
     Dosage: UNK (IN AUG)
     Route: 065
  4. RITUXIMAB [Concomitant]
     Active Substance: RITUXIMAB
     Indication: Product used for unknown indication
     Dosage: UNK
     Route: 065
  5. SOLU-MEDROL [Concomitant]
     Active Substance: METHYLPREDNISOLONE SODIUM SUCCINATE
     Indication: Product used for unknown indication
     Dosage: UNK (Q4-6 HRS (INFUSION))
     Route: 065
  6. TYLENOL [Concomitant]
     Active Substance: ACETAMINOPHEN
     Indication: Product used for unknown indication
     Dosage: UNK (Q4-6 HRS (INFUSION))
     Route: 065
  7. BENADRYL [Concomitant]
     Active Substance: DIPHENHYDRAMINE HYDROCHLORIDE
     Indication: Product used for unknown indication
     Dosage: UNK (Q4-6 HRS (INFUSION))
     Route: 065

REACTIONS (7)
  - Throat tightness [Recovered/Resolved]
  - Dyspnoea [Recovered/Resolved]
  - Swelling face [Recovered/Resolved]
  - Pharyngeal swelling [Recovered/Resolved]
  - Erythema [Recovered/Resolved]
  - Anaphylactic reaction [Unknown]
  - Product use in unapproved indication [Unknown]

NARRATIVE: CASE EVENT DATE: 20210121
